FAERS Safety Report 9602744 (Version 2)
Quarter: 2013Q4

REPORT INFORMATION
  Report Type: Spontaneous
  Country: GB (occurrence: GB)
  Receive Date: 20131007
  Receipt Date: 20131007
  Transmission Date: 20140711
  Serious: Yes (Other)
  Sender: FDA-Public Use
  Company Number: GB-GILEAD-2013-0083599

PATIENT
  Sex: 0

DRUGS (3)
  1. AMBRISENTAN [Suspect]
     Indication: HYPERTENSION
     Route: 065
     Dates: start: 20100502
  2. BOSENTAN [Concomitant]
  3. BOSENTAN [Concomitant]

REACTIONS (1)
  - Liver function test abnormal [Unknown]
